FAERS Safety Report 7061179-9 (Version None)
Quarter: 2010Q4

REPORT INFORMATION
  Report Type: 
  Country: None (occurrence: None)
  Receive Date: 20101026
  Receipt Date: 20101012
  Transmission Date: 20110411
  Serious: Yes (Other)
  Sender: FDA-Public Use
  Company Number: IT-ELI_LILLY_AND_COMPANY-IT201010004979

PATIENT
  Sex: Female

DRUGS (4)
  1. GEMCITABINE HCL [Suspect]
     Indication: OVARIAN CANCER
     Dosage: 1000 MG/M2, UNK
     Route: 042
  2. DEXAMETHASONE [Concomitant]
  3. SEROTONIN ANTAGONISTS [Concomitant]
  4. EPIRUBICIN [Concomitant]
     Indication: OVARIAN CANCER
     Dosage: 60 MG/M2, UNK
     Route: 042

REACTIONS (1)
  - HEPATIC FUNCTION ABNORMAL [None]
